FAERS Safety Report 10189345 (Version 2)
Quarter: 2014Q2

REPORT INFORMATION
  Report Type: Spontaneous
  Country: US (occurrence: US)
  Receive Date: 20140522
  Receipt Date: 20140522
  Transmission Date: 20141212
  Serious: No
  Sender: FDA-Public Use
  Company Number: US-ASTRAZENECA-2013SE50034

PATIENT
  Age: 20878 Day
  Sex: Female
  Weight: 75.3 kg

DRUGS (4)
  1. PULMICORT [Suspect]
     Indication: ASTHMA
     Dosage: PULMICORT TURBUHALER
     Route: 055
  2. PULMICORT [Suspect]
     Indication: ASTHMA
     Dosage: PULMICORT FLEXHALER: 180 MCG TWO TO THREE INHALATIONS TWICE DAILY
     Route: 055
  3. PLAQUENIL [Concomitant]
     Indication: SJOGREN^S SYNDROME
  4. SEREVENT [Concomitant]
     Indication: ASTHMA
     Dosage: ONE PUFF BID
     Route: 050

REACTIONS (6)
  - Foreign body aspiration [Unknown]
  - Chest discomfort [Unknown]
  - Dyspnoea [Unknown]
  - Sjogren^s syndrome [Unknown]
  - Cough [Unknown]
  - Off label use [Unknown]
